FAERS Safety Report 6546880-5 (Version None)
Quarter: 2010Q1

REPORT INFORMATION
  Report Type: 
  Country: None (occurrence: None)
  Receive Date: 20100122
  Receipt Date: 20100119
  Transmission Date: 20100710
  Serious: Yes (Death)
  Sender: FDA-Public Use
  Company Number: US-ASTRAZENECA-2010SE02268

PATIENT
  Sex: Female

DRUGS (2)
  1. BUPIVACAINE HCL [Suspect]
     Route: 042
  2. NORMAL SALINE [Suspect]
     Route: 042

REACTIONS (3)
  - CARDIAC ARREST [None]
  - CONVULSION [None]
  - WRONG DRUG ADMINISTERED [None]
